FAERS Safety Report 9220562 (Version 3)
Quarter: 2013Q2

REPORT INFORMATION
  Report Type: Spontaneous
  Country: US (occurrence: US)
  Receive Date: 20130409
  Receipt Date: 20130517
  Transmission Date: 20140414
  Serious: Yes (Other)
  Sender: FDA-Public Use
  Company Number: US-PFIZER INC-2013109372

PATIENT
  Sex: Male

DRUGS (4)
  1. CELEBREX [Suspect]
     Dosage: UNK
  2. NEURONTIN [Suspect]
     Dosage: UNK
  3. PROTONIX [Suspect]
     Dosage: UNK
  4. IBUPROFEN [Suspect]
     Dosage: UNK

REACTIONS (6)
  - Ulcer [Unknown]
  - Accident [Unknown]
  - Perforated ulcer [Unknown]
  - Pain [Unknown]
  - Fibromyalgia [Unknown]
  - Renal disorder [Unknown]
